FAERS Safety Report 20065427 (Version 1)
Quarter: 2021Q4

REPORT INFORMATION
  Report Type: Spontaneous
  Country: BR (occurrence: BR)
  Receive Date: 20211113
  Receipt Date: 20211113
  Transmission Date: 20220303
  Serious: Yes (Other)
  Sender: FDA-Public Use
  Company Number: None

PATIENT
  Age: 14 Year
  Sex: Female
  Weight: 58.5 kg

DRUGS (3)
  1. PREDNISONE [Suspect]
     Active Substance: PREDNISONE
     Dosage: 80 MILLIGRAM
     Dates: start: 20211004, end: 20211004
  2. SIMVASTATIN [Suspect]
     Active Substance: SIMVASTATIN
     Dosage: UNK
     Dates: start: 20211004, end: 20211004
  3. TYLENOL [Concomitant]
     Active Substance: ACETAMINOPHEN
     Dosage: 6 GRAM
     Dates: start: 20211004, end: 20211004

REACTIONS (12)
  - Suicide attempt [Recovered/Resolved]
  - Product use issue [Unknown]
  - Intentional overdose [Unknown]
  - Intentional product misuse [Unknown]
  - Intentional overdose [Unknown]
  - Intentional product misuse [Unknown]
  - Malaise [Recovered/Resolved]
  - Abdominal pain upper [Recovered/Resolved]
  - Somnolence [Recovered/Resolved]
  - Tremor [Recovered/Resolved]
  - Malaise [Recovered/Resolved]
  - Malaise [Recovered/Resolved]

NARRATIVE: CASE EVENT DATE: 20211004
